FAERS Safety Report 9837245 (Version 1)
Quarter: 2014Q1

REPORT INFORMATION
  Report Type: Spontaneous
  Country: US (occurrence: None)
  Receive Date: 20140117
  Receipt Date: 20140117
  Transmission Date: 20141002
  Serious: Yes (Hospitalization, Other)
  Sender: FDA-Public Use
  Company Number: None

PATIENT
  Age: 41 Year
  Sex: Female
  Weight: 77.11 kg

DRUGS (5)
  1. PROMETRIUM [Suspect]
     Indication: PREGNANCY
     Dosage: 1 CAPSULE (YELLOW FOOTBALL), ONCE DAILY, TAKEN BY MOUTH
     Route: 048
     Dates: start: 20110201, end: 20110404
  2. SERTRALINE [Concomitant]
  3. PRENATAL VITAMINS [Concomitant]
  4. TYLENOL [Concomitant]
  5. BENADRYL [Concomitant]

REACTIONS (5)
  - Maternal exposure during pregnancy [None]
  - Vision blurred [None]
  - Eye pain [None]
  - Abnormal sensation in eye [None]
  - Migraine with aura [None]
